FAERS Safety Report 25396736 (Version 1)
Quarter: 2025Q2

REPORT INFORMATION
  Report Type: Report from Study
  Country: US (occurrence: US)
  Receive Date: 20250604
  Receipt Date: 20250604
  Transmission Date: 20250717
  Serious: Yes (Other)
  Sender: ALEXION PHARMACEUTICALS
  Company Number: US-ASTRAZENECA-202505USA028264US

PATIENT
  Age: 56 Year

DRUGS (1)
  1. STRENSIQ [Suspect]
     Active Substance: ASFOTASE ALFA
     Indication: Phosphorus metabolism disorder
     Dosage: 49 MILLIGRAM, TIW
     Route: 065

REACTIONS (4)
  - Multiple fractures [Unknown]
  - Bone pain [Unknown]
  - Vitamin B6 increased [Unknown]
  - Anxiety [Unknown]
